FAERS Safety Report 7913175-4 (Version None)
Quarter: 2011Q4

REPORT INFORMATION
  Report Type: 
  Country: None (occurrence: None)
  Receive Date: 20111114
  Receipt Date: 20111109
  Transmission Date: 20120403
  Serious: Yes (Disabling, Other)
  Sender: FDA-Public Use
  Company Number: US-PFIZER INC-2011275646

PATIENT
  Sex: Female

DRUGS (7)
  1. CELEXA [Concomitant]
     Dosage: 80 MG, 1X/DAY
  2. BUSPAR [Concomitant]
     Dosage: UNK, 2X/DAY ((15 BID)
  3. CHANTIX [Suspect]
     Dosage: 1 MG, 2X/DAY (1 MG BID)
  4. SEROQUEL [Concomitant]
     Dosage: 100 MG, UNK (100MG QHS)
  5. CHANTIX [Suspect]
     Dosage: 0.5 MG, 1X/DAY (0.5MG QDX3 DAY)
  6. SYNTHROID [Concomitant]
     Dosage: 150 MG, 1X/DAY
  7. CHANTIX [Suspect]
     Dosage: 0.5 MG, 1X/DAY (0.5MG QD X4 DAY)

REACTIONS (2)
  - IMPAIRED WORK ABILITY [None]
  - SYSTEMIC LUPUS ERYTHEMATOSUS [None]
